FAERS Safety Report 10684420 (Version 1)
Quarter: 2014Q4

REPORT INFORMATION
  Report Type: Spontaneous
  Country: None (occurrence: None)
  Receive Date: 20141229
  Receipt Date: 20141229
  Transmission Date: 20150529
  Serious: No
  Sender: FDA-Public Use
  Company Number: None

PATIENT

DRUGS (1)
  1. RESTYLANE [Suspect]
     Active Substance: HYALURONIC ACID
     Indication: SKIN COSMETIC PROCEDURE

REACTIONS (3)
  - Swelling [None]
  - Hypoaesthesia [None]
  - Headache [None]

NARRATIVE: CASE EVENT DATE: 20141016
